FAERS Safety Report 10329057 (Version 2)
Quarter: 2014Q3

REPORT INFORMATION
  Report Type: Spontaneous
  Country: BR (occurrence: BR)
  Receive Date: 20140721
  Receipt Date: 20140819
  Transmission Date: 20150326
  Serious: Yes (Other)
  Sender: FDA-Public Use
  Company Number: PHHY2014BR088352

PATIENT
  Sex: Female
  Weight: 98 kg

DRUGS (13)
  1. FORASEQ [Concomitant]
     Active Substance: BUDESONIDE\FORMOTEROL FUMARATE
     Indication: CHRONIC OBSTRUCTIVE PULMONARY DISEASE
     Dosage: 1 DF, BID (1 CAPSULE TREATMENT ONE AND 1 CAPSULE TREATMENT TWO)
     Route: 055
  2. ONBRIZE [Concomitant]
     Active Substance: INDACATEROL MALEATE
     Indication: CHRONIC OBSTRUCTIVE PULMONARY DISEASE
     Dosage: 1 DF (ASPIRATION), DAILY
     Route: 055
  3. VITAMIN D3 [Concomitant]
     Active Substance: CHOLECALCIFEROL
     Indication: DEMENTIA
     Dosage: 10 GTT, DAILY (10 DROPS DAILY)
  4. EXELON [Suspect]
     Active Substance: RIVASTIGMINE TARTRATE
     Indication: DEMENTIA ALZHEIMER^S TYPE
     Dosage: 3 DF (3 CAPSULE)
     Route: 048
  5. FORASEQ [Concomitant]
     Active Substance: BUDESONIDE\FORMOTEROL FUMARATE
     Indication: EMPHYSEMA
  6. EXELON [Suspect]
     Active Substance: RIVASTIGMINE TARTRATE
     Indication: DEMENTIA
     Dosage: 2 DF (2 CAPSULE)
     Route: 048
  7. SPIRIVA [Concomitant]
     Active Substance: TIOTROPIUM BROMIDE MONOHYDRATE
     Indication: EMPHYSEMA
  8. ONBRIZE [Concomitant]
     Active Substance: INDACATEROL MALEATE
     Indication: EMPHYSEMA
  9. SPIRIVA [Concomitant]
     Active Substance: TIOTROPIUM BROMIDE MONOHYDRATE
     Indication: CHRONIC OBSTRUCTIVE PULMONARY DISEASE
     Dosage: 2 DF, DAILY (TWO INHALATIONS DAILY)
     Route: 055
  10. SPIRIVA [Concomitant]
     Active Substance: TIOTROPIUM BROMIDE MONOHYDRATE
     Indication: ASTHMA
  11. FORASEQ [Concomitant]
     Active Substance: BUDESONIDE\FORMOTEROL FUMARATE
     Indication: ASTHMA
  12. ONBRIZE [Concomitant]
     Active Substance: INDACATEROL MALEATE
     Indication: ASTHMA
  13. CITALOPRAM [Concomitant]
     Active Substance: CITALOPRAM HYDROBROMIDE
     Indication: DEPRESSION
     Dosage: 1 DF, DAILY

REACTIONS (1)
  - Drug ineffective [Not Recovered/Not Resolved]
